FAERS Safety Report 4710833-X (Version None)
Quarter: 2005Q3

REPORT INFORMATION
  Report Type: 
  Country: None (occurrence: None)
  Receive Date: 20050711
  Receipt Date: 20050602
  Transmission Date: 20060218
  Serious: Yes (Hospitalization)
  Sender: FDA-Public Use
  Company Number: US-GLAXOSMITHKLINE-A0561678A

PATIENT
  Age: 16 Year
  Sex: Male
  Weight: 82.3 kg

DRUGS (9)
  1. THIOGUANINE [Suspect]
     Dosage: 100MG PER DAY
     Route: 048
     Dates: start: 20050425, end: 20050509
  2. CYCLOPHOSPHAMIDE [Suspect]
  3. CYTARABINE [Suspect]
  4. STRATTERA [Concomitant]
  5. ZOFRAN [Concomitant]
  6. BACTRIM [Concomitant]
  7. VISTARIL [Concomitant]
  8. ZANTAC [Concomitant]
  9. METHOTREXATE [Concomitant]

REACTIONS (15)
  - ANAEMIA [None]
  - BLISTER [None]
  - BURSITIS [None]
  - CHILLS [None]
  - FEBRILE NEUTROPENIA [None]
  - HYPOTENSION [None]
  - LUNG CONSOLIDATION [None]
  - MUCOSAL INFLAMMATION [None]
  - NERVOUS SYSTEM DISORDER [None]
  - PAIN [None]
  - PANCYTOPENIA [None]
  - PYREXIA [None]
  - RASH ERYTHEMATOUS [None]
  - SKIN EXFOLIATION [None]
  - TACHYCARDIA [None]
